FAERS Safety Report 6378407-5 (Version None)
Quarter: 2009Q3

REPORT INFORMATION
  Report Type: 
  Country: None (occurrence: None)
  Receive Date: 20090925
  Receipt Date: 20090618
  Transmission Date: 20100115
  Serious: Yes (Other)
  Sender: FDA-Public Use
  Company Number: US-ASTRAZENECA-2007UW25574

PATIENT
  Age: 41 Year
  Sex: Male
  Weight: 86.2 kg

DRUGS (5)
  1. SEROQUEL [Suspect]
     Indication: BIPOLAR DISORDER
     Route: 048
     Dates: start: 19960101
  2. RISPERDAL [Concomitant]
     Dates: start: 19950601, end: 19951201
  3. ZYPREXA [Concomitant]
     Dates: start: 19960101, end: 20041223
  4. HALDOL [Concomitant]
  5. THORAZINE [Concomitant]
     Dates: start: 19950101

REACTIONS (3)
  - EXTRAPYRAMIDAL DISORDER [None]
  - TARDIVE DYSKINESIA [None]
  - TYPE 2 DIABETES MELLITUS [None]
